FAERS Safety Report 16271644 (Version 1)
Quarter: 2019Q2

REPORT INFORMATION
  Report Type: Spontaneous
  Country: GB (occurrence: GB)
  Receive Date: 20190503
  Receipt Date: 20190503
  Transmission Date: 20190711
  Serious: Yes (Other)
  Sender: FDA-Public Use
  Company Number: GB-JNJFOC-20190437072

PATIENT
  Sex: Male

DRUGS (1)
  1. HUMAN CLOTTABLE PROTEIN/HUMAN THROMBIN [Suspect]
     Active Substance: FIBRINOGEN HUMAN\THROMBIN HUMAN
     Indication: CYST
     Route: 050

REACTIONS (3)
  - Exophthalmos [Recovered/Resolved]
  - Product use in unapproved indication [Unknown]
  - Off label use [Unknown]
